FAERS Safety Report 14207229 (Version 1)
Quarter: 2017Q4

REPORT INFORMATION
  Report Type: Spontaneous
  Country: US (occurrence: US)
  Receive Date: 20171121
  Receipt Date: 20171121
  Transmission Date: 20180321
  Serious: No
  Sender: FDA-Public Use
  Company Number: US-JNJFOC-20171109441

PATIENT
  Age: 8 Decade
  Sex: Male

DRUGS (2)
  1. DOXIL [Suspect]
     Active Substance: DOXORUBICIN HYDROCHLORIDE
     Indication: BREAST CANCER STAGE IV
     Route: 042
     Dates: start: 20170811, end: 20171102
  2. DOXIL [Suspect]
     Active Substance: DOXORUBICIN HYDROCHLORIDE
     Indication: BREAST CANCER STAGE IV
     Route: 042
     Dates: start: 20171102

REACTIONS (4)
  - Abnormal loss of weight [Unknown]
  - Heart rate increased [Unknown]
  - Hypertension [Unknown]
  - Decreased appetite [Unknown]

NARRATIVE: CASE EVENT DATE: 2017
